FAERS Safety Report 23845030 (Version 3)
Quarter: 2024Q2

REPORT INFORMATION
  Report Type: Spontaneous
  Country: AU (occurrence: None)
  Receive Date: 20240511
  Receipt Date: 20240523
  Transmission Date: 20240716
  Serious: Yes (Other)
  Sender: FDA-Public Use
  Company Number: AU-ROCHE-3556998

PATIENT
  Age: 26 Year
  Sex: Female

DRUGS (2)
  1. VABYSMO [Suspect]
     Active Substance: FARICIMAB\FARICIMAB-SVOA
     Indication: Diabetic retinal oedema
     Dosage: RIGHT EYE?LEFT EYE: /JUN/2023?SECOND INJECTION OF VABYSMO GIVEN IN THE LEFT EYE IN /NOV/2023
     Route: 065
     Dates: start: 202305
  2. VABYSMO [Suspect]
     Active Substance: FARICIMAB\FARICIMAB-SVOA
     Indication: Diabetic retinopathy

REACTIONS (3)
  - Blindness [Unknown]
  - Retinal occlusive vasculitis [Unknown]
  - Macular ischaemia [Unknown]
